FAERS Safety Report 5226169-7 (Version None)
Quarter: 2007Q1

REPORT INFORMATION
  Report Type: 
  Country: None (occurrence: None)
  Receive Date: 20070129
  Receipt Date: 20061130
  Transmission Date: 20070707
  Serious: Yes (Death)
  Sender: FDA-Public Use
  Company Number: T200601698

PATIENT

DRUGS (3)
  1. OXYCODONE HCL [Suspect]
  2. MEPERIDINE HCL [Suspect]
  3. HYDROCHLORIDE/ACETAMINOPHEN (HYDOCODONE BITARTRATE, ACETAMINOPHEN) TAB [Suspect]

REACTIONS (3)
  - CARDIAC ARREST [None]
  - MEDICATION ERROR [None]
  - RESPIRATORY ARREST [None]
